FAERS Safety Report 7666762-5 (Version None)
Quarter: 2011Q3

REPORT INFORMATION
  Report Type: 
  Country: None (occurrence: None)
  Receive Date: 20110806
  Receipt Date: 20110630
  Transmission Date: 20111222
  Serious: No
  Sender: FDA-Public Use
  Company Number: US-ABBOTT-11P-163-0835813-00

PATIENT
  Sex: Female
  Weight: 61.29 kg

DRUGS (13)
  1. AMLODIPINE [Concomitant]
     Indication: HYPERTENSION
  2. MEDROXYPROGESTERONE [Concomitant]
     Indication: HORMONE THERAPY
  3. OMEPRAZOLE [Concomitant]
     Indication: GASTROOESOPHAGEAL REFLUX DISEASE
  4. LISINOPRIL [Concomitant]
     Indication: HYPERTENSION
  5. LIPITOR [Concomitant]
     Indication: BLOOD CHOLESTEROL INCREASED
  6. ZOLPIDEM [Concomitant]
     Indication: SLEEP DISORDER
  7. METOPROLOL TARTRATE [Concomitant]
     Indication: HYPERTENSION
  8. HYDROCHLOROTHIAZIDE [Concomitant]
     Indication: FLUID RETENTION
  9. NIASPAN [Suspect]
     Indication: LOW DENSITY LIPOPROTEIN INCREASED
     Dates: start: 20110525, end: 20110625
  10. ESTROGENIC SUBSTANCE [Concomitant]
     Indication: HORMONE REPLACEMENT THERAPY
  11. NIASPAN [Suspect]
     Indication: BLOOD TRIGLYCERIDES INCREASED
     Dates: start: 20110626
  12. DICLOFENAC SODIUM [Concomitant]
     Indication: PAIN
  13. TRAMADOL HCL [Concomitant]
     Indication: PAIN

REACTIONS (4)
  - HEADACHE [None]
  - TINNITUS [None]
  - ASTHENIA [None]
  - NAUSEA [None]
